FAERS Safety Report 15338472 (Version 3)
Quarter: 2019Q1

REPORT INFORMATION
  Report Type: Spontaneous
  Country: JP (occurrence: JP)
  Receive Date: 20180831
  Receipt Date: 20190301
  Transmission Date: 20190417
  Serious: Yes (Hospitalization)
  Sender: FDA-Public Use
  Company Number: JP-ACTELION-A-CH2018-178237

PATIENT
  Age: 78 Year
  Sex: Female
  Weight: 50.7 kg

DRUGS (3)
  1. OPSUMIT [Concomitant]
     Active Substance: MACITENTAN
     Indication: PULMONARY HYPERTENSION
     Dosage: 10 MG, QD
     Route: 048
     Dates: start: 20180328
  2. UPTRAVI [Suspect]
     Active Substance: SELEXIPAG
     Indication: PULMONARY HYPERTENSION
     Dosage: 0.4 MG, QD
     Route: 048
     Dates: start: 20180618, end: 20180720
  3. ELIQUIS [Concomitant]
     Active Substance: APIXABAN
     Indication: PULMONARY HYPERTENSION
     Dosage: 10 MG, QD

REACTIONS (3)
  - Headache [Recovering/Resolving]
  - Right ventricular failure [Recovering/Resolving]
  - Pneumonia [Recovering/Resolving]

NARRATIVE: CASE EVENT DATE: 20180627
